FAERS Safety Report 11370833 (Version 1)
Quarter: 2015Q3

REPORT INFORMATION
  Report Type: Spontaneous
  Country: JP (occurrence: JP)
  Receive Date: 20150812
  Receipt Date: 20150812
  Transmission Date: 20151125
  Serious: Yes (Other)
  Sender: FDA-Public Use
  Company Number: JP-PFIZER INC-2015267810

PATIENT
  Age: 87 Year
  Sex: Female

DRUGS (2)
  1. MUCOSTA [Concomitant]
     Active Substance: REBAMIPIDE
     Dosage: UNK
     Route: 048
     Dates: start: 20150716, end: 20150717
  2. CELECOX [Suspect]
     Active Substance: CELECOXIB
     Indication: CERVICOBRACHIAL SYNDROME
     Dosage: 200 MG, DAILY
     Route: 048
     Dates: start: 20150716, end: 20150717

REACTIONS (1)
  - Toxic skin eruption [Recovered/Resolved]

NARRATIVE: CASE EVENT DATE: 20150717
